FAERS Safety Report 9713392 (Version 1)
Quarter: 2013Q4

REPORT INFORMATION
  Report Type: Spontaneous
  Country: US (occurrence: None)
  Receive Date: 20131125
  Receipt Date: 20131125
  Transmission Date: 20140711
  Serious: Yes (Life-Threatening, Hospitalization)
  Sender: FDA-Public Use
  Company Number: None

PATIENT
  Age: 83 Year
  Sex: Female
  Weight: 68.04 kg

DRUGS (1)
  1. XARELTO [Suspect]
     Indication: EMBOLISM
     Route: 048
     Dates: start: 20131122, end: 20131124

REACTIONS (2)
  - Haemorrhage [None]
  - Intra-abdominal haematoma [None]
